FAERS Safety Report 9281211 (Version 1)
Quarter: 2013Q2

REPORT INFORMATION
  Report Type: Spontaneous
  Country: CA (occurrence: CA)
  Receive Date: 20130509
  Receipt Date: 20130509
  Transmission Date: 20140414
  Serious: Yes (Hospitalization)
  Sender: FDA-Public Use
  Company Number: CA-TEVA-403898USA

PATIENT
  Age: 91 Year
  Sex: Male

DRUGS (4)
  1. AZITHROMYCIN [Suspect]
     Dosage: 500 MILLIGRAM DAILY;
     Route: 048
  2. AZITHROMYCIN [Suspect]
     Dosage: 250 MILLIGRAM DAILY;
     Route: 048
  3. ASA [Concomitant]
  4. MELOXICAM [Concomitant]

REACTIONS (3)
  - Leukocytoclastic vasculitis [Recovered/Resolved]
  - Purpura [Recovered/Resolved]
  - Renal failure acute [Recovered/Resolved]
